FAERS Safety Report 7469002-5 (Version None)
Quarter: 2011Q2

REPORT INFORMATION
  Report Type: 
  Country: None (occurrence: None)
  Receive Date: 20110510
  Receipt Date: 20110429
  Transmission Date: 20111010
  Serious: Yes (Hospitalization)
  Sender: FDA-Public Use
  Company Number: CZ-ELI_LILLY_AND_COMPANY-CZ201104001112

PATIENT
  Sex: Male
  Weight: 115 kg

DRUGS (8)
  1. BYETTA [Suspect]
     Indication: TYPE 2 DIABETES MELLITUS
     Dosage: 5 UG, UNK
     Dates: start: 20100301, end: 20110401
  2. BETALOC [Concomitant]
     Indication: ANGINA PECTORIS
     Dosage: 200 MG, UNK
     Route: 048
     Dates: start: 20040801
  3. ANOPYRIN [Concomitant]
     Indication: MYOCARDIAL ISCHAEMIA
     Dosage: 100 MG, UNK
     Route: 048
     Dates: start: 20040801
  4. BYETTA [Suspect]
     Dosage: 10 UG, BID
     Route: 058
     Dates: start: 20110402
  5. ZOCOR [Concomitant]
     Indication: DYSLIPIDAEMIA
     Dosage: 10 MG, UNK
     Route: 048
     Dates: start: 20040801
  6. INHIBACE [Concomitant]
     Indication: HYPERTENSION
     Dosage: 5 MG, UNK
     Route: 048
     Dates: start: 20040801
  7. HYDROCHLOROTHIAZIDE [Concomitant]
     Indication: HYPERTENSION
     Dosage: 12.5 MG, UNK
     Route: 048
  8. AMARYL [Concomitant]
     Indication: TYPE 2 DIABETES MELLITUS
     Dosage: 3 G, UNK
     Route: 048
     Dates: start: 20090401

REACTIONS (2)
  - WEIGHT DECREASED [None]
  - OEDEMATOUS PANCREATITIS [None]
